FAERS Safety Report 8786257 (Version 1)
Quarter: 2012Q4

REPORT INFORMATION
  Report Type: Report from Study
  Country: US (occurrence: US)
  Receive Date: 20120914
  Receipt Date: 20120914
  Transmission Date: 20130627
  Serious: No
  Sender: FDA-Public Use
  Company Number: US-VERTEX PHARMACEUTICAL INC.-AE-2012-009920

PATIENT

DRUGS (9)
  1. INCIVEK [Suspect]
     Indication: HEPATITIS C
     Route: 048
  2. PEGASYS [Concomitant]
     Indication: HEPATITIS C
  3. RIBAVIRIN [Concomitant]
  4. METFORMIN [Concomitant]
     Indication: HEPATITIS C
  5. GLYBURIDE [Concomitant]
  6. VITAMIN B CO [Concomitant]
  7. CINNAMON [Concomitant]
  8. COCONUT OIL [Concomitant]
  9. FISH OIL [Concomitant]

REACTIONS (6)
  - Irritability [Unknown]
  - Insomnia [Unknown]
  - Decreased appetite [Unknown]
  - Rash [Unknown]
  - Nausea [Unknown]
  - Dysgeusia [Unknown]
